FAERS Safety Report 13375544 (Version 2)
Quarter: 2017Q2

REPORT INFORMATION
  Report Type: Spontaneous
  Country: SE (occurrence: SE)
  Receive Date: 20170328
  Receipt Date: 20170404
  Transmission Date: 20170830
  Serious: Yes (Hospitalization)
  Sender: FDA-Public Use
  Company Number: SE-009507513-1703SWE010938

PATIENT
  Age: 70 Year
  Sex: Female

DRUGS (13)
  1. JANUVIA [Suspect]
     Active Substance: SITAGLIPTIN PHOSPHATE
     Indication: DIABETES MELLITUS
     Dosage: 100 MG, QD
     Route: 048
     Dates: start: 20140204
  2. MINDIAB [Suspect]
     Active Substance: GLIPIZIDE
     Indication: DIABETES MELLITUS
     Dosage: 5 MG, QD
     Route: 048
     Dates: start: 20110315
  3. EMCONCOR [Concomitant]
     Active Substance: BISOPROLOL FUMARATE
  4. SIMVASTATIN ARROW [Concomitant]
     Active Substance: SIMVASTATIN
  5. OMEPRAZOLE MYLAN [Concomitant]
     Active Substance: OMEPRAZOLE
  6. ENALAPRIL MALEATE. [Concomitant]
     Active Substance: ENALAPRIL MALEATE
     Indication: HYPERTENSION
  7. OVESTERIN [Concomitant]
     Active Substance: ESTRIOL
  8. CITODON (ACETAMINOPHEN (+) CODEINE PHOSPHATE) [Concomitant]
  9. NOVOMIX 30 [Suspect]
     Active Substance: INSULIN ASPART
     Indication: DIABETES MELLITUS
     Dosage: 50IU IN THE MORNING AND 44IU AT 5PM REDUCED TO 44IU IN THE MORNING AND 32 IU IN THE EVENING
     Route: 058
     Dates: start: 20110315
  10. METFORMIN ACTAVIS [Suspect]
     Active Substance: METFORMIN HYDROCHLORIDE
     Indication: DIABETES MELLITUS
     Dosage: 1000 MG, QD
     Route: 048
     Dates: start: 20150202
  11. FURIX [Concomitant]
     Active Substance: FUROSEMIDE
  12. NITROLINGUAL [Concomitant]
     Active Substance: NITROGLYCERIN
  13. NIFEREX (FERROUS GLYCINE SULFATE) [Concomitant]

REACTIONS (2)
  - Incorrect dose administered [Unknown]
  - Hypoglycaemia [Unknown]

NARRATIVE: CASE EVENT DATE: 20150617
